FAERS Safety Report 10678412 (Version 2)
Quarter: 2015Q1

REPORT INFORMATION
  Report Type: Spontaneous
  Country: US (occurrence: None)
  Receive Date: 20141223
  Receipt Date: 20150113
  Transmission Date: 20150720
  Serious: No
  Sender: FDA-Public Use
  Company Number: 201412105

PATIENT
  Age: 71 Year
  Sex: Male
  Weight: 91.63 kg

DRUGS (1)
  1. XIAFLEX [Suspect]
     Active Substance: COLLAGENASE CLOSTRIDIUM HISTOLYTICUM
     Indication: DUPUYTREN^S CONTRACTURE
     Dosage: 0.58 MG, 1 IN 1D,  INTRALESIONAL
     Dates: start: 20141204, end: 20141204

REACTIONS (2)
  - Thrombophlebitis superficial [None]
  - Thrombosis [None]

NARRATIVE: CASE EVENT DATE: 20141216
